FAERS Safety Report 6690102-1 (Version None)
Quarter: 2010Q2

REPORT INFORMATION
  Report Type: 
  Country: None (occurrence: None)
  Receive Date: 20100412
  Receipt Date: 20091222
  Transmission Date: 20101027
  Serious: No
  Sender: FDA-Public Use
  Company Number: 1000010927

PATIENT
  Age: 76 Year
  Sex: Female

DRUGS (2)
  1. BYSTOLIC [Suspect]
     Indication: HYPERTENSION
     Dosage: 5 MG, ORAL
     Route: 048
     Dates: start: 20091208
  2. DILTIAZEM HCL [Concomitant]

REACTIONS (3)
  - FAECES PALE [None]
  - NAUSEA [None]
  - VOMITING [None]
